FAERS Safety Report 23298918 (Version 1)
Quarter: 2023Q4

REPORT INFORMATION
  Report Type: Spontaneous
  Country: FR (occurrence: FR)
  Receive Date: 20231215
  Receipt Date: 20231215
  Transmission Date: 20240109
  Serious: Yes (Other)
  Sender: FDA-Public Use
  Company Number: None

PATIENT
  Age: 22 Year
  Sex: Male
  Weight: 80 kg

DRUGS (8)
  1. RISPERDAL [Suspect]
     Active Substance: RISPERIDONE
     Indication: Psychiatric decompensation
     Route: 048
     Dates: start: 20231103, end: 20231110
  2. HALDOL [Suspect]
     Active Substance: HALOPERIDOL
     Indication: Psychiatric decompensation
     Route: 048
     Dates: start: 20231025, end: 20231113
  3. PALIPERIDONE [Suspect]
     Active Substance: PALIPERIDONE
     Indication: Schizophrenia
     Route: 030
     Dates: start: 20231107, end: 20231107
  4. DEPAKOTE [Suspect]
     Active Substance: DIVALPROEX SODIUM
     Indication: Psychiatric decompensation
     Route: 048
     Dates: start: 20231103, end: 20231110
  5. TRANXENE [Suspect]
     Active Substance: CLORAZEPATE DIPOTASSIUM
     Indication: Psychiatric decompensation
     Dosage: PUIS PER OS
     Route: 042
     Dates: start: 20231020, end: 20231109
  6. OLANZAPINE [Suspect]
     Active Substance: OLANZAPINE
     Indication: Psychiatric decompensation
     Route: 048
     Dates: start: 20231021, end: 20231109
  7. CYAMEMAZINE [Suspect]
     Active Substance: CYAMEMAZINE
     Indication: Psychiatric decompensation
     Route: 030
     Dates: start: 20231020, end: 20231110
  8. DAFALGAN [Suspect]
     Active Substance: ACETAMINOPHEN
     Indication: Pain
     Route: 048
     Dates: start: 20231104, end: 20231110

REACTIONS (2)
  - Cholestasis [Recovering/Resolving]
  - Hepatic cytolysis [Recovering/Resolving]

NARRATIVE: CASE EVENT DATE: 20231110
